FAERS Safety Report 9158610 (Version 1)
Quarter: 2013Q1

REPORT INFORMATION
  Report Type: Spontaneous
  Country: US (occurrence: US)
  Receive Date: 20130312
  Receipt Date: 20130312
  Transmission Date: 20140127
  Serious: No
  Sender: FDA-Public Use
  Company Number: US-ASTRAZENECA-2013SE13302

PATIENT
  Age: 66 Year
  Sex: Female
  Weight: 52.2 kg

DRUGS (2)
  1. NEXIUM [Suspect]
     Indication: GASTROOESOPHAGEAL REFLUX DISEASE
     Route: 048
     Dates: start: 201210
  2. REGLAN [Concomitant]
     Indication: GASTRIC HYPOMOTILITY
     Route: 048
     Dates: start: 201210, end: 20130218

REACTIONS (3)
  - Back pain [Not Recovered/Not Resolved]
  - Hypertonic bladder [Not Recovered/Not Resolved]
  - Bladder discomfort [Not Recovered/Not Resolved]
